FAERS Safety Report 7590159-X (Version None)
Quarter: 2011Q3

REPORT INFORMATION
  Report Type: 
  Country: None (occurrence: None)
  Receive Date: 20110705
  Receipt Date: 20110629
  Transmission Date: 20111222
  Serious: Yes (Other)
  Sender: FDA-Public Use
  Company Number: D0071909A

PATIENT
  Sex: Male

DRUGS (1)
  1. TROBALT [Suspect]
     Route: 048

REACTIONS (2)
  - AGGRESSION [None]
  - CONFUSIONAL STATE [None]
